FAERS Safety Report 7474168-7 (Version None)
Quarter: 2011Q2

REPORT INFORMATION
  Report Type: 
  Country: None (occurrence: None)
  Receive Date: 20110511
  Receipt Date: 20110509
  Transmission Date: 20111010
  Serious: Yes (Life-Threatening, Hospitalization)
  Sender: FDA-Public Use
  Company Number: US-GILEAD-2011-0038921

PATIENT
  Sex: Female
  Weight: 62.652 kg

DRUGS (20)
  1. ATENOLOL [Concomitant]
     Indication: HYPERTENSION
  2. ACYCLOVIR [Concomitant]
     Indication: GENITAL HERPES
  3. CODEINE SULFATE [Concomitant]
     Indication: SCIATICA
  4. TRAZODONE HCL [Concomitant]
     Indication: INSOMNIA
  5. SIMVASTATIN [Concomitant]
  6. GEMFIBROZIL [Concomitant]
  7. IBUPROFEN [Concomitant]
     Indication: SCIATICA
  8. BACTRIM [Concomitant]
     Indication: ANTIFUNGAL PROPHYLAXIS
  9. METOCLOPRAMIDE [Concomitant]
  10. LAMOTRIGINE [Concomitant]
     Indication: DEPRESSION
  11. METFORMIN HCL [Concomitant]
     Indication: TYPE 2 DIABETES MELLITUS
  12. ATRIPLA [Suspect]
     Indication: HIV INFECTION
     Dates: start: 20110303
  13. LORAZEPAM [Concomitant]
  14. TERCONAZOLE [Concomitant]
     Indication: FUNGAL INFECTION
  15. CETIRIZINE HCL [Concomitant]
     Indication: SEASONAL ALLERGY
  16. GABAPENTIN [Concomitant]
  17. TRUVADA [Suspect]
     Indication: HIV INFECTION
     Dates: start: 20080911
  18. LISINOPRIL [Concomitant]
     Indication: HYPERTENSION
  19. FAMOTIDINE [Concomitant]
  20. ACETAMINOPHEN [Concomitant]
     Indication: SCIATICA

REACTIONS (3)
  - LACTIC ACIDOSIS [None]
  - SEPTIC SHOCK [None]
  - RENAL FAILURE ACUTE [None]
